FAERS Safety Report 15585223 (Version 2)
Quarter: 2018Q4

REPORT INFORMATION
  Report Type: Spontaneous
  Country: DE (occurrence: DE)
  Receive Date: 20181105
  Receipt Date: 20181107
  Transmission Date: 20190205
  Serious: Yes (Congenital Anomaly, Other)
  Sender: FDA-Public Use
  Company Number: DE-DSJP-DSE-2018-145966

PATIENT

DRUGS (4)
  1. OLMESARTAN MEDOXOMIL. [Suspect]
     Active Substance: OLMESARTAN MEDOXOMIL
     Indication: ACCIDENTAL EXPOSURE TO PRODUCT
     Dosage: 40 MG, QD
     Route: 064
     Dates: start: 20171109, end: 20171116
  2. AMOXICLAV [Concomitant]
     Active Substance: AMOXICILLIN\CLAVULANATE POTASSIUM
     Indication: ACCIDENTAL EXPOSURE TO PRODUCT
     Dosage: ()
     Route: 064
     Dates: start: 20171111, end: 20171117
  3. OMEPRAZOLE. [Suspect]
     Active Substance: OMEPRAZOLE
     Indication: ACCIDENTAL EXPOSURE TO PRODUCT
     Dosage: ALTERNATING WITH PANTOPRAZOLE
     Route: 064
  4. PANTOPRAZOLE [Suspect]
     Active Substance: PANTOPRAZOLE
     Indication: ACCIDENTAL EXPOSURE TO PRODUCT
     Dosage: ALTERNATING WITH OMEPRAZOLE
     Route: 064

REACTIONS (3)
  - Foetal exposure during pregnancy [Unknown]
  - Congenital megaureter [Not Recovered/Not Resolved]
  - Pyelocaliectasis [Recovering/Resolving]

NARRATIVE: CASE EVENT DATE: 20180327
